FAERS Safety Report 13383161 (Version 1)
Quarter: 2017Q1

REPORT INFORMATION
  Report Type: Spontaneous
  Country: US (occurrence: US)
  Receive Date: 20170329
  Receipt Date: 20170329
  Transmission Date: 20170429
  Serious: Yes (Other)
  Sender: FDA-Public Use
  Company Number: US-ELI_LILLY_AND_COMPANY-US201703008884

PATIENT
  Age: 56 Year
  Sex: Male

DRUGS (4)
  1. ATENOLOL. [Concomitant]
     Active Substance: ATENOLOL
  2. TRAMADOL. [Concomitant]
     Active Substance: TRAMADOL
     Indication: PAIN
  3. CIALIS [Suspect]
     Active Substance: TADALAFIL
     Indication: POOR PERIPHERAL CIRCULATION
     Dosage: 5 MG, UNKNOWN
     Route: 048
  4. GABAPENTIN. [Concomitant]
     Active Substance: GABAPENTIN

REACTIONS (3)
  - Intestinal obstruction [Recovered/Resolved]
  - Peripheral coldness [Not Recovered/Not Resolved]
  - Nerve injury [Recovered/Resolved]

NARRATIVE: CASE EVENT DATE: 200803
